FAERS Safety Report 25663136 (Version 2)
Quarter: 2025Q4

REPORT INFORMATION
  Report Type: Spontaneous
  Country: US (occurrence: US)
  Receive Date: 20250811
  Receipt Date: 20251119
  Transmission Date: 20260117
  Serious: Yes (Hospitalization)
  Sender: JOHNSON AND JOHNSON
  Company Number: US-JNJFOC-20250739133

PATIENT
  Sex: Male

DRUGS (1)
  1. TECVAYLI [Suspect]
     Active Substance: TECLISTAMAB-CQYV
     Indication: Plasma cell myeloma
     Route: 058
     Dates: start: 20250707

REACTIONS (6)
  - Escherichia infection [Recovered/Resolved]
  - Hemiparesis [Unknown]
  - Psychomotor skills impaired [Unknown]
  - Dysarthria [Unknown]
  - Dysphagia [Unknown]
  - Hiccups [Unknown]

NARRATIVE: CASE EVENT DATE: 20250707
